FAERS Safety Report 15348660 (Version 1)
Quarter: 2018Q3

REPORT INFORMATION
  Report Type: Spontaneous
  Country: US (occurrence: US)
  Receive Date: 20180904
  Receipt Date: 20180904
  Transmission Date: 20181010
  Serious: No
  Sender: FDA-Public Use
  Company Number: US-TEVA-2018-US-950788

PATIENT
  Age: 29 Year
  Sex: Female

DRUGS (3)
  1. SPRINTEC [Suspect]
     Active Substance: ETHINYL ESTRADIOL\NORGESTIMATE
     Indication: DYSMENORRHOEA
  2. SPRINTEC [Suspect]
     Active Substance: ETHINYL ESTRADIOL\NORGESTIMATE
     Indication: CONTRACEPTION
     Dosage: DOSE STRENGTH:  0.250 MG/0.035 MG
     Route: 065
     Dates: start: 2014
  3. SPRINTEC [Suspect]
     Active Substance: ETHINYL ESTRADIOL\NORGESTIMATE
     Indication: MENSTRUATION DELAYED

REACTIONS (4)
  - Urticaria [Unknown]
  - Amenorrhoea [Unknown]
  - Rash [Unknown]
  - Drug prescribing error [Unknown]

NARRATIVE: CASE EVENT DATE: 2014
